FAERS Safety Report 16013801 (Version 1)
Quarter: 2019Q1

REPORT INFORMATION
  Report Type: Report from Study
  Country: FR (occurrence: FR)
  Receive Date: 20190227
  Receipt Date: 20190227
  Transmission Date: 20190418
  Serious: Yes (Hospitalization)
  Sender: FDA-Public Use
  Company Number: FR-JNJFOC-20190230440

PATIENT
  Age: 14 Year
  Sex: Male
  Weight: 33 kg

DRUGS (4)
  1. 5-ASA [Concomitant]
     Active Substance: MESALAMINE
     Route: 054
  2. 5-ASA [Concomitant]
     Active Substance: MESALAMINE
     Route: 048
  3. REMICADE [Suspect]
     Active Substance: INFLIXIMAB
     Indication: CROHN^S DISEASE
     Route: 042
     Dates: start: 20131010, end: 20141020
  4. 6-MP [Concomitant]
     Active Substance: MERCAPTOPURINE
     Route: 065

REACTIONS (1)
  - Crohn^s disease [Recovered/Resolved]

NARRATIVE: CASE EVENT DATE: 201810
